FAERS Safety Report 7709921-5 (Version None)
Quarter: 2011Q3

REPORT INFORMATION
  Report Type: 
  Country: None (occurrence: None)
  Receive Date: 20110825
  Receipt Date: 20110812
  Transmission Date: 20111222
  Serious: No
  Sender: FDA-Public Use
  Company Number: US-B.I. PHARMACEUTICALS,INC./RIDGEFIELD-2011-BP-19874BP

PATIENT
  Sex: Male

DRUGS (9)
  1. SPIRIVA [Suspect]
     Indication: CHRONIC OBSTRUCTIVE PULMONARY DISEASE
     Dosage: 18 MCG
     Route: 055
     Dates: start: 20110812
  2. FLECAINIDE ACETATE [Concomitant]
     Indication: ATRIAL FIBRILLATION
     Dates: start: 20050101
  3. COMBIVENT [Concomitant]
     Indication: CHRONIC OBSTRUCTIVE PULMONARY DISEASE
     Dates: start: 19950101
  4. SIMAVASTATIN [Concomitant]
     Indication: BLOOD CHOLESTEROL INCREASED
     Dates: start: 20010101
  5. VITAMIN B COMPLEX CAP [Concomitant]
     Indication: ROUTINE HEALTH MAINTENANCE
     Dates: start: 20110101
  6. MUCINEX [Concomitant]
     Indication: SEASONAL ALLERGY
     Dates: start: 20110101
  7. COUMADIN [Concomitant]
     Indication: ATRIAL FIBRILLATION
     Dates: start: 20050101
  8. AMLODIPINE [Concomitant]
     Indication: HYPERTENSION
     Dates: start: 20010101
  9. CLARITIN [Concomitant]
     Indication: SEASONAL ALLERGY
     Dates: start: 20110101

REACTIONS (2)
  - EMOTIONAL DISORDER [None]
  - DYSPNOEA [None]
